FAERS Safety Report 21891786 (Version 1)
Quarter: 2023Q1

REPORT INFORMATION
  Report Type: Spontaneous
  Country: US (occurrence: None)
  Receive Date: 20230120
  Receipt Date: 20230120
  Transmission Date: 20230418
  Serious: Yes (Hospitalization)
  Sender: FDA-Public Use
  Company Number: None

PATIENT
  Age: 70 Year
  Sex: Female

DRUGS (1)
  1. ZEJULA [Suspect]
     Active Substance: NIRAPARIB
     Indication: Ovarian cancer
     Dosage: FREQUENCY : DAILY;?
     Route: 048
     Dates: start: 202112

REACTIONS (5)
  - COVID-19 [None]
  - Diverticulitis [None]
  - Constipation [None]
  - Fatigue [None]
  - Dry skin [None]

NARRATIVE: CASE EVENT DATE: 20221201
